FAERS Safety Report 26189874 (Version 1)
Quarter: 2025Q4

REPORT INFORMATION
  Report Type: Spontaneous
  Country: US (occurrence: US)
  Receive Date: 20251223
  Receipt Date: 20251223
  Transmission Date: 20260117
  Serious: No
  Sender: TELIX PHARMACEUTICALS
  Company Number: US-TLX-2025000140

PATIENT
  Sex: Male

DRUGS (1)
  1. GOZELLIX [Suspect]
     Active Substance: GOZETOTIDE
     Indication: Diagnostic procedure
     Dosage: REQUESTED DOSE:6.0MCI?DISPENSED:6.2 MCI?VOLUME:5.5 ML ?CALIBRATION TIME:12:30PM
     Route: 040
     Dates: start: 20251121, end: 20251121

REACTIONS (1)
  - Injection site pain [Unknown]

NARRATIVE: CASE EVENT DATE: 20251121
